FAERS Safety Report 5237047-1 (Version None)
Quarter: 2007Q1

REPORT INFORMATION
  Report Type: 
  Country: None (occurrence: None)
  Receive Date: 20070209
  Receipt Date: 20070124
  Transmission Date: 20070707
  Serious: Yes (Hospitalization)
  Sender: FDA-Public Use
  Company Number: DSA_29310_2007

PATIENT
  Age: 65 Year
  Sex: Male

DRUGS (10)
  1. RENIVACE [Suspect]
     Indication: CARDIAC FAILURE
     Dosage: 5 MG QD PO
     Route: 048
     Dates: start: 20061126, end: 20070109
  2. NU LOTAN [Suspect]
     Indication: CARDIAC FAILURE
     Dosage: 50 MG QD PO
     Route: 048
     Dates: start: 20061126, end: 20070109
  3. ALDACTONE [Concomitant]
  4. LUPRAC [Concomitant]
  5. SPELEAR [Concomitant]
  6. HUSTAZOL [Concomitant]
  7. CLARITHROMYCIN [Concomitant]
  8. TAKEPRON [Concomitant]
  9. BAKTAR [Concomitant]
  10. PREDNISOLONE [Concomitant]

REACTIONS (4)
  - BLOOD IMMUNOGLOBULIN E INCREASED [None]
  - ERYTHEMA [None]
  - RASH GENERALISED [None]
  - RASH PAPULAR [None]
